FAERS Safety Report 8177063-3 (Version None)
Quarter: 2012Q1

REPORT INFORMATION
  Report Type: 
  Country: None (occurrence: None)
  Receive Date: 20120301
  Receipt Date: 20110606
  Transmission Date: 20120608
  Serious: Yes (Hospitalization)
  Sender: FDA-Public Use
  Company Number: US-GLAXOSMITHKLINE-A0932379A

PATIENT
  Age: 63 Year
  Sex: Male

DRUGS (1)
  1. AVANDIA [Suspect]
     Indication: DIABETES MELLITUS
     Dosage: 4NG PER DAY
     Route: 048
     Dates: start: 20011106, end: 20080415

REACTIONS (7)
  - CARDIAC DISORDER [None]
  - STENT PLACEMENT [None]
  - SILENT MYOCARDIAL INFARCTION [None]
  - CORONARY ARTERY DISEASE [None]
  - GAIT DISTURBANCE [None]
  - MYOCARDIAL INFARCTION [None]
  - DYSPNOEA [None]
